FAERS Safety Report 7392379-6 (Version None)
Quarter: 2011Q2

REPORT INFORMATION
  Report Type: 
  Country: None (occurrence: None)
  Receive Date: 20110404
  Receipt Date: 20101001
  Transmission Date: 20111010
  Serious: Yes (Hospitalization)
  Sender: FDA-Public Use
  Company Number: US-BAYER-201034364NA

PATIENT
  Sex: Female
  Weight: 75.737 kg

DRUGS (4)
  1. YASMIN [Suspect]
     Indication: POLYCYSTIC OVARIES
     Dosage: UNK UNK, QD
     Route: 048
     Dates: start: 20080307, end: 20080727
  2. OCELLA [Suspect]
     Indication: POLYCYSTIC OVARIES
     Route: 048
     Dates: start: 20080727, end: 20080814
  3. ASCORBIC ACID [Concomitant]
  4. YASMIN [Suspect]
     Route: 048
     Dates: start: 20021204, end: 20030708

REACTIONS (5)
  - PULMONARY EMBOLISM [None]
  - DEEP VEIN THROMBOSIS [None]
  - VARICOSE VEIN [None]
  - PAIN [None]
  - OEDEMA PERIPHERAL [None]
